FAERS Safety Report 6335315-3 (Version None)
Quarter: 2009Q3

REPORT INFORMATION
  Report Type: 
  Country: None (occurrence: None)
  Receive Date: 20090831
  Receipt Date: 20090826
  Transmission Date: 20100115
  Serious: Yes (Hospitalization)
  Sender: FDA-Public Use
  Company Number: US-GILEAD-2009-0023835

PATIENT
  Sex: Female
  Weight: 86.26 kg

DRUGS (11)
  1. LETAIRIS [Suspect]
     Indication: PULMONARY ARTERIAL HYPERTENSION
  2. NEURONTIN [Concomitant]
  3. PROTONIX [Concomitant]
  4. SYNTHROID [Concomitant]
  5. LEXAPRO [Concomitant]
  6. POSACONAZOLE [Concomitant]
  7. PREDNISONE [Concomitant]
  8. PROGRAF [Concomitant]
  9. SEROQUEL [Concomitant]
  10. FENTANYL TRANSDERMAL SYSTEM [Concomitant]
  11. XANAX [Concomitant]

REACTIONS (2)
  - OEDEMA [None]
  - UNEVALUABLE EVENT [None]
